FAERS Safety Report 7769546-2 (Version None)
Quarter: 2011Q3

REPORT INFORMATION
  Report Type: 
  Country: None (occurrence: None)
  Receive Date: 20110922
  Receipt Date: 20100803
  Transmission Date: 20111222
  Serious: No
  Sender: FDA-Public Use
  Company Number: US-ASTRAZENECA-2010SE36338

PATIENT
  Sex: Female

DRUGS (3)
  1. SEROQUEL [Suspect]
     Indication: BIPOLAR DISORDER
     Route: 048
     Dates: start: 20100704
  2. PRISTIQ [Concomitant]
  3. LISINOPRIL [Concomitant]

REACTIONS (6)
  - WEIGHT DECREASED [None]
  - DRUG DOSE OMISSION [None]
  - HYPERHIDROSIS [None]
  - SOMNOLENCE [None]
  - RESTLESS LEGS SYNDROME [None]
  - HYPOAESTHESIA [None]
